FAERS Safety Report 25931172 (Version 1)
Quarter: 2025Q4

REPORT INFORMATION
  Report Type: Spontaneous
  Country: US (occurrence: US)
  Receive Date: 20251016
  Receipt Date: 20251016
  Transmission Date: 20260117
  Serious: No
  Sender: SANOFI AVENTIS
  Company Number: US-SA-2025SA307767

PATIENT
  Age: 65 Year
  Sex: Male

DRUGS (12)
  1. DUPIXENT [Suspect]
     Active Substance: DUPILUMAB
     Indication: Prostate cancer
     Dosage: 300 MG, QOW
     Route: 058
     Dates: start: 20250911
  2. LISINOPRIL [Concomitant]
     Active Substance: LISINOPRIL
  3. CLONAZEPAM [Concomitant]
     Active Substance: CLONAZEPAM
  4. EZETIMIBE [Concomitant]
     Active Substance: EZETIMIBE
  5. FAMOTIDINE [Concomitant]
     Active Substance: FAMOTIDINE
  6. MOUNJARO [Concomitant]
     Active Substance: TIRZEPATIDE
  7. NEBIVOLOL [Concomitant]
     Active Substance: NEBIVOLOL
  8. OZEMPIC [Concomitant]
     Active Substance: SEMAGLUTIDE
  9. PANTOPRAZOLE [Concomitant]
     Active Substance: PANTOPRAZOLE
  10. PROLIA [Concomitant]
     Active Substance: DENOSUMAB
  11. ROSUVASTATIN [Concomitant]
     Active Substance: ROSUVASTATIN
  12. TAMSULOSIN HYDROCHLORIDE [Concomitant]
     Active Substance: TAMSULOSIN HYDROCHLORIDE

REACTIONS (8)
  - Dry eye [Not Recovered/Not Resolved]
  - Ocular hyperaemia [Not Recovered/Not Resolved]
  - Vision blurred [Not Recovered/Not Resolved]
  - Episcleritis [Not Recovered/Not Resolved]
  - Arthralgia [Not Recovered/Not Resolved]
  - Back pain [Not Recovered/Not Resolved]
  - Surgery [Not Recovered/Not Resolved]
  - Product use in unapproved indication [Unknown]

NARRATIVE: CASE EVENT DATE: 20250101
